FAERS Safety Report 16103218 (Version 1)
Quarter: 2019Q1

REPORT INFORMATION
  Report Type: Spontaneous
  Country: US (occurrence: US)
  Receive Date: 20190322
  Receipt Date: 20190322
  Transmission Date: 20190418
  Serious: No
  Sender: FDA-Public Use
  Company Number: US-GLAXOSMITHKLINE-US2019047792

PATIENT
  Age: 60 Year
  Sex: Female

DRUGS (1)
  1. NUCALA [Suspect]
     Active Substance: MEPOLIZUMAB
     Indication: ASTHMA
     Dosage: 100 MG, ONCE A MONTH
     Dates: start: 201809

REACTIONS (3)
  - Oropharyngeal pain [Unknown]
  - Dysphonia [Unknown]
  - Product dose omission [Unknown]

NARRATIVE: CASE EVENT DATE: 201811
